FAERS Safety Report 4370875-3 (Version None)
Quarter: 2004Q2

REPORT INFORMATION
  Report Type: 
  Country: None (occurrence: None)
  Receive Date: 20040601
  Receipt Date: 20040525
  Transmission Date: 20050107
  Serious: Yes (Other)
  Sender: FDA-Public Use
  Company Number: 202288

PATIENT
  Sex: 0

DRUGS (1)
  1. MABTHERA (RITUXIMAB) CONC FOR SOLUTION FOR INFUSION [Suspect]
     Indication: NON-HODGKIN'S LYMPHOMA
     Dosage: 250 MG, SINGLE, INTRAVENOUS
     Route: 042

REACTIONS (7)
  - COORDINATION ABNORMAL [None]
  - HYPOTENSION [None]
  - INFUSION RELATED REACTION [None]
  - MOTOR DYSFUNCTION [None]
  - PYREXIA [None]
  - TRANSIENT ISCHAEMIC ATTACK [None]
  - TREMOR [None]
